FAERS Safety Report 5102256-9 (Version None)
Quarter: 2006Q3

REPORT INFORMATION
  Report Type: 
  Country: None (occurrence: None)
  Receive Date: 20060912
  Receipt Date: 20060901
  Transmission Date: 20061208
  Serious: Yes (Death)
  Sender: FDA-Public Use
  Company Number: GB-JNJFOC-20060306537

PATIENT
  Age: 29 Year
  Sex: Male

DRUGS (2)
  1. RISPERDAL [Suspect]
     Dosage: ADMINISTERED AT THIS DOSE FOR ONE WEEK BEFORE REACTION OCCURRED.
     Route: 048
  2. RISPERDAL [Suspect]
     Indication: DRUG USE FOR UNKNOWN INDICATION
     Route: 048

REACTIONS (6)
  - DIABETES MELLITUS [None]
  - FALL [None]
  - HEADACHE [None]
  - HYPOGLYCAEMIC COMA [None]
  - INFLUENZA LIKE ILLNESS [None]
  - SEPSIS [None]
